FAERS Safety Report 6837182-8 (Version None)
Quarter: 2010Q3

REPORT INFORMATION
  Report Type: 
  Country: None (occurrence: None)
  Receive Date: 20100707
  Receipt Date: 20100627
  Transmission Date: 20110219
  Serious: Yes (Other)
  Sender: FDA-Public Use
  Company Number: 230045J08CAN

PATIENT
  Age: 24 Year
  Sex: Female

DRUGS (6)
  1. REBIF [Suspect]
     Indication: RELAPSING-REMITTING MULTIPLE SCLEROSIS
     Dosage: 44 MCG, 3 IN 1 WK
     Dates: start: 20070821
  2. NEURONTIN [Suspect]
     Dosage: 300 MG, 1 IN  1 D
     Dates: start: 20090501, end: 20090101
  3. MULTI-VITAMINS [Concomitant]
  4. VITAMIN D [Concomitant]
  5. MULTIVITAMIN [Concomitant]
  6. ADVIL LIQUI-GELS [Concomitant]

REACTIONS (19)
  - ABDOMINAL DISTENSION [None]
  - APPETITE DISORDER [None]
  - ARTHRALGIA [None]
  - ASTHENIA [None]
  - CHEST PAIN [None]
  - DYSPNOEA [None]
  - EPISTAXIS [None]
  - FEELING ABNORMAL [None]
  - GAIT DISTURBANCE [None]
  - GRIP STRENGTH DECREASED [None]
  - HEPATIC ENZYME INCREASED [None]
  - INJECTION SITE COLDNESS [None]
  - INJECTION SITE PAIN [None]
  - INJECTION SITE WARMTH [None]
  - MIGRAINE [None]
  - NAUSEA [None]
  - PAIN IN EXTREMITY [None]
  - STRESS [None]
  - URINARY TRACT INFECTION [None]
